FAERS Safety Report 13843670 (Version 3)
Quarter: 2017Q3

REPORT INFORMATION
  Report Type: Spontaneous
  Country: DE (occurrence: DE)
  Receive Date: 20170808
  Receipt Date: 20170822
  Transmission Date: 20171127
  Serious: Yes (Other)
  Sender: FDA-Public Use
  Company Number: DE-ROCHE-1974849

PATIENT
  Sex: Male

DRUGS (2)
  1. VALGANCICLOVIR. [Suspect]
     Active Substance: VALGANCICLOVIR
     Indication: CYTOMEGALOVIRUS INFECTION
     Route: 065
  2. VALGANCICLOVIR. [Suspect]
     Active Substance: VALGANCICLOVIR
     Indication: PRODUCT USED FOR UNKNOWN INDICATION
     Route: 064

REACTIONS (5)
  - Product use issue [Unknown]
  - Foetal exposure during pregnancy [Unknown]
  - Neutropenia neonatal [Recovering/Resolving]
  - Gamma-glutamyltransferase increased [Recovering/Resolving]
  - Off label use [Unknown]
